FAERS Safety Report 22694261 (Version 2)
Quarter: 2024Q1

REPORT INFORMATION
  Report Type: Spontaneous
  Country: US (occurrence: US)
  Receive Date: 20230711
  Receipt Date: 20240201
  Transmission Date: 20240409
  Serious: No
  Sender: FDA-Public Use
  Company Number: US-BAUSCHBL-2023BNL005809

PATIENT
  Age: 73 Year
  Sex: Male

DRUGS (5)
  1. LATANOPROST [Suspect]
     Active Substance: LATANOPROST
     Indication: Intraocular pressure increased
     Route: 047
  2. NAPROXEN [Concomitant]
     Active Substance: NAPROXEN
     Indication: Product used for unknown indication
     Route: 048
  3. SYSTANE HYDRATION PF PRESERVATIVE FREE [Concomitant]
     Active Substance: POLYETHYLENE GLYCOL 400\PROPYLENE GLYCOL
     Indication: Product used for unknown indication
     Route: 047
  4. ALLOPURINOL [Concomitant]
     Active Substance: ALLOPURINOL
     Indication: Product used for unknown indication
     Dosage: AS DIRECTED
     Route: 048
  5. OMEPRAZOLE [Concomitant]
     Active Substance: OMEPRAZOLE
     Indication: Product used for unknown indication
     Dosage: AS DIRECTED
     Route: 048

REACTIONS (8)
  - Eye pain [Unknown]
  - Ocular hyperaemia [Unknown]
  - Foreign body sensation in eyes [Unknown]
  - Product delivery mechanism issue [Unknown]
  - Exposure via skin contact [Unknown]
  - Accidental exposure to product [Unknown]
  - Product closure removal difficult [Unknown]
  - Product quality issue [Unknown]
